FAERS Safety Report 14681453 (Version 1)
Quarter: 2018Q1

REPORT INFORMATION
  Report Type: Spontaneous
  Country: US (occurrence: US)
  Receive Date: 20180326
  Receipt Date: 20180326
  Transmission Date: 20180509
  Serious: No
  Sender: FDA-Public Use
  Company Number: US-AKRON, INC.-2044546

PATIENT
  Sex: Male

DRUGS (1)
  1. BRIMONIDINE TARTRATE 0.2% SOLUTION [Suspect]
     Active Substance: BRIMONIDINE TARTRATE
     Indication: OCULAR HYPERTENSION
     Route: 047

REACTIONS (2)
  - Blood pressure systolic decreased [Recovered/Resolved]
  - Bradycardia [Recovered/Resolved]
